FAERS Safety Report 5597771-8 (Version None)
Quarter: 2007Q4

REPORT INFORMATION
  Report Type: 
  Country: None (occurrence: None)
  Receive Date: 20071221
  Receipt Date: 20070925
  Transmission Date: 20080405
  Serious: No
  Sender: FDA-Public Use
  Company Number: SPV1-2007-04269

PATIENT
  Age: 54 Year
  Sex: Female
  Weight: 59 kg

DRUGS (1)
  1. VYVANSE [Suspect]
     Indication: ATTENTION DEFICIT/HYPERACTIVITY DISORDER
     Dosage: 70 MG, 1X/DAY:QD, ORAL
     Route: 048
     Dates: start: 20070921, end: 20070924

REACTIONS (8)
  - BLISTER [None]
  - DIARRHOEA [None]
  - EYE SWELLING [None]
  - EYELID IRRITATION [None]
  - HEADACHE [None]
  - NAUSEA [None]
  - ORAL MUCOSAL BLISTERING [None]
  - RASH [None]
